FAERS Safety Report 13023569 (Version 1)
Quarter: 2016Q4

REPORT INFORMATION
  Report Type: Spontaneous
  Country: US (occurrence: US)
  Receive Date: 20161212
  Receipt Date: 20161212
  Transmission Date: 20170207
  Serious: Yes (Disabling)
  Sender: FDA-Public Use
  Company Number: None

PATIENT
  Age: 51 Year
  Sex: Female

DRUGS (1)
  1. DULOXETINE HCL [Suspect]
     Active Substance: DULOXETINE HYDROCHLORIDE
     Indication: NEURALGIA
     Dosage: ?          QUANTITY:30 CAPSULE(S);?
     Route: 048
     Dates: start: 20161209, end: 20161212

REACTIONS (6)
  - Muscle spasms [None]
  - Drug ineffective [None]
  - Fatigue [None]
  - Depression [None]
  - Somnolence [None]
  - Pain [None]

NARRATIVE: CASE EVENT DATE: 20161212
